FAERS Safety Report 7335032-7 (Version None)
Quarter: 2011Q1

REPORT INFORMATION
  Report Type: 
  Country: None (occurrence: None)
  Receive Date: 20110307
  Receipt Date: 20110303
  Transmission Date: 20110831
  Serious: Yes (Life-Threatening)
  Sender: FDA-Public Use
  Company Number: SE-ROCHE-763314

PATIENT
  Age: 9 Year
  Sex: Female

DRUGS (1)
  1. ROACTEMRA [Suspect]
     Indication: RHEUMATOID ARTHRITIS
     Dosage: DOSE:240MGN
     Route: 042
     Dates: start: 20100426, end: 20101115

REACTIONS (1)
  - ENCEPHALITIS [None]
